FAERS Safety Report 4607788-5 (Version None)
Quarter: 2005Q1

REPORT INFORMATION
  Report Type: 
  Country: None (occurrence: None)
  Receive Date: 20050314
  Receipt Date: 20050113
  Transmission Date: 20050727
  Serious: Yes (Other)
  Sender: FDA-Public Use
  Company Number: DE-GLAXOSMITHKLINE-D0045631A

PATIENT
  Age: 43 Year
  Sex: Female
  Weight: 59 kg

DRUGS (4)
  1. VIANI [Suspect]
     Indication: ASTHMA
     Route: 055
     Dates: start: 19970101
  2. DOXEPIN HCL [Suspect]
     Indication: DEPRESSION
     Dosage: 10MG THREE TIMES PER DAY
     Route: 048
     Dates: start: 20041101, end: 20050101
  3. TAXOL [Concomitant]
     Indication: BREAST CANCER
     Route: 065
     Dates: end: 20040101
  4. ATACAND [Concomitant]
     Indication: HYPERTENSION
     Dosage: 16MG PER DAY
     Route: 048
     Dates: start: 20041101, end: 20050101

REACTIONS (1)
  - ALANINE AMINOTRANSFERASE INCREASED [None]
